FAERS Safety Report 12931589 (Version 1)
Quarter: 2016Q4

REPORT INFORMATION
  Report Type: Spontaneous
  Country: US (occurrence: US)
  Receive Date: 20161110
  Receipt Date: 20161110
  Transmission Date: 20170207
  Serious: No
  Sender: FDA-Public Use
  Company Number: US-SHIRE-US201615572

PATIENT
  Sex: Female

DRUGS (1)
  1. XIIDRA [Suspect]
     Active Substance: LIFITEGRAST
     Indication: DRY EYE
     Dosage: 1 GTT, 2X/DAY:BID; REPORTED AS ONE DROP TWICE DAILY IN EACH EYE 5%
     Route: 047

REACTIONS (3)
  - Condition aggravated [Unknown]
  - Blepharitis [Unknown]
  - Accidental underdose [Not Recovered/Not Resolved]
